FAERS Safety Report 25730690 (Version 1)
Quarter: 2025Q3

REPORT INFORMATION
  Report Type: Spontaneous
  Country: BR (occurrence: None)
  Receive Date: 20250826
  Receipt Date: 20250826
  Transmission Date: 20251021
  Serious: Yes (Disabling)
  Sender: FDA-CTU
  Company Number: None

PATIENT
  Age: 35 Year
  Sex: Female
  Weight: 71 kg

DRUGS (2)
  1. MOUNJARO [Suspect]
     Active Substance: TIRZEPATIDE
  2. BUPROPION [Concomitant]
     Active Substance: BUPROPION

REACTIONS (3)
  - Sensitive skin [None]
  - Pain of skin [None]
  - Product communication issue [None]

NARRATIVE: CASE EVENT DATE: 20250815
